FAERS Safety Report 13368475 (Version 1)
Quarter: 2017Q1

REPORT INFORMATION
  Report Type: Spontaneous
  Country: US (occurrence: US)
  Receive Date: 20170324
  Receipt Date: 20170324
  Transmission Date: 20170429
  Serious: No
  Sender: FDA-Public Use
  Company Number: US-PFIZER INC-2017124538

PATIENT
  Age: 53 Year
  Sex: Female

DRUGS (2)
  1. CELEBREX [Suspect]
     Active Substance: CELECOXIB
     Dosage: UNK
  2. LIDODERM [Suspect]
     Active Substance: LIDOCAINE
     Dosage: UNK

REACTIONS (1)
  - Drug hypersensitivity [Unknown]
